FAERS Safety Report 8355907-X (Version None)
Quarter: 2012Q2

REPORT INFORMATION
  Report Type: 
  Country: None (occurrence: None)
  Receive Date: 20120511
  Receipt Date: 20120511
  Transmission Date: 20120825
  Serious: No
  Sender: FDA-Public Use
  Company Number: None

PATIENT
  Sex: Male
  Weight: 104.3273 kg

DRUGS (1)
  1. OMNICEF [Suspect]
     Indication: LABYRINTHITIS
     Dosage: 1 CAPSULE TWICE DAILY PO
     Route: 048
     Dates: start: 20120501, end: 20120508

REACTIONS (12)
  - NECK PAIN [None]
  - SPINAL PAIN [None]
  - LYMPH NODE PAIN [None]
  - ARTHRALGIA [None]
  - URINE ODOUR ABNORMAL [None]
  - ABDOMINAL PAIN [None]
  - MYALGIA [None]
  - URINE COLOUR ABNORMAL [None]
  - ABNORMAL FAECES [None]
  - CHROMATURIA [None]
  - DIARRHOEA [None]
  - LYMPHADENOPATHY [None]
